FAERS Safety Report 16936699 (Version 4)
Quarter: 2019Q4

REPORT INFORMATION
  Report Type: Report from Study
  Country: US (occurrence: US)
  Receive Date: 20191018
  Receipt Date: 20191231
  Transmission Date: 20200122
  Serious: Yes (Hospitalization)
  Sender: FDA-Public Use
  Company Number: US-BAYER-2019-170738

PATIENT
  Age: 64 Year
  Sex: Female

DRUGS (3)
  1. LITHIUM. [Concomitant]
     Active Substance: LITHIUM
  2. STIVARGA [Suspect]
     Active Substance: REGORAFENIB
     Indication: RECTAL CANCER
     Dosage: 40 MG, BID
     Route: 048
     Dates: start: 20190911, end: 201909
  3. STIVARGA [Suspect]
     Active Substance: REGORAFENIB
     Indication: RECTAL CANCER
     Dosage: 80 MG, QD (FOR 21 DAYS ON, 7 DAYS OFF   )
     Route: 048
     Dates: start: 20190914

REACTIONS (9)
  - Confusional state [Not Recovered/Not Resolved]
  - Treatment noncompliance [None]
  - Urine output decreased [Unknown]
  - Asthenia [Unknown]
  - Off label use [None]
  - Hospitalisation [Unknown]
  - Urinary tract infection [Unknown]
  - Dehydration [Unknown]
  - Antipsychotic drug level increased [Not Recovered/Not Resolved]

NARRATIVE: CASE EVENT DATE: 20190911
